FAERS Safety Report 10815280 (Version 3)
Quarter: 2015Q1

REPORT INFORMATION
  Report Type: Spontaneous
  Country: JP (occurrence: JP)
  Receive Date: 20150218
  Receipt Date: 20150313
  Transmission Date: 20150721
  Serious: Yes (Other)
  Sender: FDA-Public Use
  Company Number: JP-ROCHE-1538704

PATIENT
  Age: 55 Year
  Sex: Female
  Weight: 53 kg

DRUGS (1)
  1. KADCYLA [Suspect]
     Active Substance: ADO-TRASTUZUMAB EMTANSINE
     Indication: BREAST CANCER
     Route: 041
     Dates: start: 20150202, end: 20150202

REACTIONS (3)
  - Tumour haemorrhage [Recovered/Resolved]
  - Platelet count decreased [Unknown]
  - Cerebellar haemorrhage [Recovered/Resolved with Sequelae]

NARRATIVE: CASE EVENT DATE: 20150207
